FAERS Safety Report 4717089-2 (Version None)
Quarter: 2005Q3

REPORT INFORMATION
  Report Type: 
  Country: None (occurrence: None)
  Receive Date: 20050712
  Receipt Date: 20040805
  Transmission Date: 20060218
  Serious: Yes (Other)
  Sender: FDA-Public Use
  Company Number: PHEH2004US07913

PATIENT
  Age: 53 Year
  Sex: Female
  Weight: 74.4 kg

DRUGS (11)
  1. GLEEVEC [Suspect]
     Indication: CHRONIC MYELOID LEUKAEMIA
     Dosage: 400 MG, QD, ORAL
     Route: 048
     Dates: start: 20040212, end: 20040713
  2. GLEEVEC [Suspect]
     Indication: CHRONIC MYELOID LEUKAEMIA
     Dosage: 400 MG, QD, ORAL
     Route: 048
     Dates: start: 20040726
  3. DIOVAN [Suspect]
     Indication: HYPERTENSION
     Dosage: 160 MG, QD, ORAL
     Route: 048
     Dates: start: 20040601, end: 20040713
  4. HYDROCHLOROTHIAZIDE/TRIAMTERENE (HYDROCHLOROTHIAZIDE, TRIAMTERENE) [Suspect]
     Indication: HYPERTENSION
     Dosage: 37.5/25 QD, ORAL
     Route: 048
     Dates: start: 20040601, end: 20040713
  5. POTASSIUM (POTASSIUM) [Concomitant]
  6. PROTONIX [Concomitant]
  7. PAXIL [Concomitant]
  8. CRESTOR [Concomitant]
  9. COMPAZINE [Concomitant]
  10. ZOFRAN [Concomitant]
  11. ZYRTEC [Concomitant]

REACTIONS (5)
  - BLOOD CREATININE INCREASED [None]
  - GASTROOESOPHAGEAL REFLUX DISEASE [None]
  - HYPOKALAEMIA [None]
  - HYPOTENSION [None]
  - NAUSEA [None]
